FAERS Safety Report 8974264 (Version 1)
Quarter: 2012Q4

REPORT INFORMATION
  Report Type: Spontaneous
  Country: BE (occurrence: None)
  Receive Date: 20121214
  Receipt Date: 20121214
  Transmission Date: 20130627
  Serious: Yes (Other)
  Sender: FDA-Public Use
  Company Number: 2012000260

PATIENT
  Sex: Male

DRUGS (2)
  1. ACEON (PERINDOPRIL ERBUMINE) TABLET [Suspect]
     Indication: PRODUCT USED FOR UNKNOWN INDICATION
     Dosage: ,  Oral
     Route: 048
  2. AMIODARONE [Suspect]

REACTIONS (1)
  - Pulmonary fibrosis [None]
